FAERS Safety Report 7255253-1 (Version None)
Quarter: 2011Q1

REPORT INFORMATION
  Report Type: 
  Country: None (occurrence: None)
  Receive Date: 20110129
  Receipt Date: 20100326
  Transmission Date: 20110831
  Serious: No
  Sender: FDA-Public Use
  Company Number: US-ABBOTT-10P-163-0634819-00

PATIENT
  Sex: Female
  Weight: 79.904 kg

DRUGS (1)
  1. HUMIRA [Suspect]
     Indication: ANKYLOSING SPONDYLITIS
     Dates: start: 20100324

REACTIONS (5)
  - NODULE [None]
  - TENDERNESS [None]
  - ERYTHEMA [None]
  - INJECTION SITE PAIN [None]
  - WHITE BLOOD CELL COUNT INCREASED [None]
